FAERS Safety Report 20150880 (Version 1)
Quarter: 2021Q4

REPORT INFORMATION
  Report Type: Spontaneous
  Country: BE (occurrence: BE)
  Receive Date: 20211206
  Receipt Date: 20211206
  Transmission Date: 20220304
  Serious: Yes (Death, Life-Threatening, Hospitalization, Other)
  Sender: FDA-Public Use
  Company Number: BE-MLMSERVICE-2021111732172481

PATIENT
  Age: 8 Year
  Sex: Male

DRUGS (13)
  1. CARBOPLATIN [Suspect]
     Active Substance: CARBOPLATIN
     Indication: Metastases to the mediastinum
     Dosage: 200 MG/M2/DAY CONTINUOUS INFUSION OVER 4 DAYS (DAYS 2-5)
     Route: 041
     Dates: start: 20190209, end: 20190213
  2. METHOTREXATE [Suspect]
     Active Substance: METHOTREXATE
     Indication: Anaplastic large-cell lymphoma
     Dosage: 3 G/M2 OVER 3 HR DAY 1 (BM COURSE)
     Route: 042
     Dates: start: 2018, end: 2018
  3. ETOPOSIDE [Suspect]
     Active Substance: ETOPOSIDE
     Indication: Anaplastic large-cell lymphoma
     Dosage: 100 MG/M2 OVER 2 HR ON DAYS 4 AND 5
     Route: 042
     Dates: start: 2018, end: 2019
  4. DOXORUBICIN [Suspect]
     Active Substance: DOXORUBICIN
     Indication: Metastases to the mediastinum
     Dosage: 25 MG/M2 OVER 1 HR  DAYS 4-5 BM COURSE
     Route: 042
     Dates: start: 2018, end: 2018
  5. CYTARABINE [Suspect]
     Active Substance: CYTARABINE
     Indication: Anaplastic large-cell lymphoma
     Dosage: DAY 1 PRE-PHASE
     Route: 037
     Dates: start: 20181122, end: 20181122
  6. IFOSFAMIDE [Suspect]
     Active Substance: IFOSFAMIDE
     Indication: Metastases to the mediastinum
     Dosage: 2 G/M2/DAY CONTINUOUS INFUSION OVER 5 DAYS (DAYS 2-6) ICM COURSE (10GM/SQ.MT)
     Route: 042
     Dates: start: 20190209, end: 20190214
  7. XALKORI [Suspect]
     Active Substance: CRIZOTINIB
     Indication: Anaplastic large-cell lymphoma
     Dosage: NASOGASTRIC
     Dates: start: 201902, end: 201903
  8. PREDNISOLONE [Suspect]
     Active Substance: PREDNISOLONE
     Indication: Metastases to the mediastinum
     Dosage: DAY 1
     Route: 037
     Dates: start: 20190208, end: 20191231
  9. DEXAMETHASONE [Suspect]
     Active Substance: DEXAMETHASONE
     Indication: Anaplastic large-cell lymphoma
     Dosage: 5 MG/M2 TWICE/DAY  DAYS 3-5 PRE-PHASE
     Route: 048
     Dates: start: 20181124, end: 20181127
  10. HYDROCORTISONE [Suspect]
     Active Substance: HYDROCORTISONE
     Indication: Metastases to the mediastinum
     Dosage: PRE-PHASE DAY 1
     Route: 037
     Dates: start: 20181122, end: 20181122
  11. CYCLOPHOSPHAMIDE [Suspect]
     Active Substance: CYCLOPHOSPHAMIDE
     Indication: Anaplastic large-cell lymphoma
     Dosage: 200 MG/MT SQ OVER 1 HR DAYS 1-5 BM COURSE
     Route: 042
     Dates: start: 2018, end: 2018
  12. MITOXANTRONE [Suspect]
     Active Substance: MITOXANTRONE HYDROCHLORIDE
     Indication: Metastases to the mediastinum
     Dosage: 8 MG/M2/DAY OVER 30 MIN (DAYS 1 AND 2)
     Route: 042
     Dates: start: 20190208, end: 20190228
  13. VINBLASTINE [Suspect]
     Active Substance: VINBLASTINE
     Indication: Metastases to the mediastinum
     Route: 042
     Dates: start: 201902, end: 201903

REACTIONS (17)
  - Mucosal inflammation [Fatal]
  - Myelosuppression [Fatal]
  - Toxicity to various agents [Fatal]
  - Cerebral fungal infection [Fatal]
  - Pseudomonas infection [Fatal]
  - Staphylococcal scalded skin syndrome [Fatal]
  - Enterococcal infection [Fatal]
  - Bacteraemia [Fatal]
  - Cystitis haemorrhagic [Fatal]
  - Neutropenia [Fatal]
  - Renal failure [Fatal]
  - Staphylococcal infection [Fatal]
  - Multiple organ dysfunction syndrome [Fatal]
  - Alpha haemolytic streptococcal infection [Fatal]
  - Bronchopulmonary aspergillosis [Fatal]
  - Neutropenic colitis [Fatal]
  - Off label use [Unknown]

NARRATIVE: CASE EVENT DATE: 20190101
